FAERS Safety Report 5193253-6 (Version None)
Quarter: 2006Q4

REPORT INFORMATION
  Report Type: 
  Country: None (occurrence: None)
  Receive Date: 20061228
  Receipt Date: 20060801
  Transmission Date: 20070319
  Serious: No
  Sender: FDA-Public Use
  Company Number: US-GLAXOSMITHKLINE-A0614417A

PATIENT
  Age: 60 Year
  Sex: Female

DRUGS (3)
  1. AVODART [Suspect]
     Indication: DRUG USE FOR UNKNOWN INDICATION
     Dosage: .5MG SINGLE DOSE
     Route: 048
     Dates: start: 20060801, end: 20060801
  2. CLARITIN [Concomitant]
  3. ACTONEL [Concomitant]

REACTIONS (1)
  - ACCIDENTAL EXPOSURE [None]
